FAERS Safety Report 25202782 (Version 1)
Quarter: 2025Q2

REPORT INFORMATION
  Report Type: Spontaneous
  Country: US (occurrence: US)
  Receive Date: 20250416
  Receipt Date: 20250416
  Transmission Date: 20250716
  Serious: No
  Sender: GALPHARM INTERNATIONAL
  Company Number: US-PERRIGO-25US000697

PATIENT
  Sex: Female

DRUGS (2)
  1. MICONAZOLE 3 COMBINATION PACK [Suspect]
     Active Substance: MICONAZOLE NITRATE
     Indication: Vulvovaginal burning sensation
     Route: 067
     Dates: start: 20250103, end: 20250103
  2. MICONAZOLE 3 COMBINATION PACK [Suspect]
     Active Substance: MICONAZOLE NITRATE
     Indication: Vulvovaginal mycotic infection

REACTIONS (2)
  - Condition aggravated [Recovered/Resolved]
  - Vulvovaginal discomfort [Recovered/Resolved]
